FAERS Safety Report 6067759-1 (Version None)
Quarter: 2009Q1

REPORT INFORMATION
  Report Type: 
  Country: None (occurrence: None)
  Receive Date: 20090203
  Receipt Date: 20090123
  Transmission Date: 20090719
  Serious: Yes (Hospitalization)
  Sender: FDA-Public Use
  Company Number: 20096148

PATIENT
  Age: 43 Year
  Sex: Female

DRUGS (1)
  1. LIORESAL [Suspect]
     Indication: MUSCLE SPASTICITY
     Dosage: 49.98 MCG, DIALY, INTRATHECAL
     Route: 037

REACTIONS (3)
  - CATHETER RELATED INFECTION [None]
  - ERYTHEMA [None]
  - PURULENCE [None]
